FAERS Safety Report 8157311-6 (Version None)
Quarter: 2012Q1

REPORT INFORMATION
  Report Type: 
  Country: None (occurrence: None)
  Receive Date: 20120222
  Receipt Date: 20120214
  Transmission Date: 20120608
  Serious: Yes (Other)
  Sender: FDA-Public Use
  Company Number: US-VERTEX PHARMACEUTICALS INC.-AE-2012-002162

PATIENT
  Sex: Female

DRUGS (4)
  1. INCIVEK [Suspect]
     Indication: HEPATITIS C
     Dates: start: 20110916
  2. RISPERDAL [Concomitant]
  3. RIBAVIRIN [Concomitant]
     Indication: HEPATITIS C
     Dates: start: 20110916
  4. PEG-INTRON [Concomitant]
     Indication: HEPATITIS C
     Dates: start: 20110916

REACTIONS (6)
  - ABDOMINAL PAIN [None]
  - HERNIA [None]
  - URINARY TRACT INFECTION [None]
  - PAIN IN EXTREMITY [None]
  - RASH PRURITIC [None]
  - SUICIDAL IDEATION [None]
